FAERS Safety Report 6010494-6 (Version None)
Quarter: 2008Q4

REPORT INFORMATION
  Report Type: 
  Country: None (occurrence: None)
  Receive Date: 20081218
  Receipt Date: 20081211
  Transmission Date: 20090506
  Serious: Yes (Hospitalization)
  Sender: FDA-Public Use
  Company Number: DE-ABBOTT-08P-062-0492462-00

PATIENT
  Sex: Female

DRUGS (6)
  1. HUMIRA [Suspect]
     Indication: CROHN'S DISEASE
     Route: 058
     Dates: start: 20080625
  2. HUMIRA [Suspect]
     Route: 050
     Dates: start: 20081203
  3. AZATHIOPRINE [Concomitant]
     Indication: CROHN'S DISEASE
  4. TOLPERISONE [Concomitant]
     Indication: DRUG USE FOR UNKNOWN INDICATION
  5. DIPYRONE TAB [Concomitant]
     Indication: PAIN
  6. TRAMADOL HCL [Concomitant]
     Indication: PAIN

REACTIONS (2)
  - DEAFNESS [None]
  - OTITIS MEDIA [None]
